FAERS Safety Report 10756002 (Version 1)
Quarter: 2015Q1

REPORT INFORMATION
  Report Type: Spontaneous
  Country: GB (occurrence: GB)
  Receive Date: 20150202
  Receipt Date: 20150202
  Transmission Date: 20150721
  Serious: Yes (Other)
  Sender: FDA-Public Use
  Company Number: GB-009507513-1501GBR011990

PATIENT
  Sex: Female

DRUGS (1)
  1. MIRTAZAPINE. [Suspect]
     Active Substance: MIRTAZAPINE

REACTIONS (6)
  - Pain [Unknown]
  - Burning sensation [Unknown]
  - Myalgia [Unknown]
  - Paraesthesia [Unknown]
  - Dyspnoea [Unknown]
  - Discomfort [Unknown]
